FAERS Safety Report 5101004-6 (Version None)
Quarter: 2006Q3

REPORT INFORMATION
  Report Type: 
  Country: None (occurrence: None)
  Receive Date: 20060911
  Receipt Date: 20060831
  Transmission Date: 20061208
  Serious: Yes (Hospitalization)
  Sender: FDA-Public Use
  Company Number: GR-BRISTOL-MYERS SQUIBB COMPANY-13493861

PATIENT
  Age: 10 Year
  Sex: Male
  Weight: 30 kg

DRUGS (3)
  1. PROCEF FOR OS 250 MG/5 ML [Suspect]
     Indication: OTITIS EXTERNA
     Route: 048
     Dates: start: 20060808, end: 20060809
  2. TOBRADEX [Concomitant]
     Indication: OTITIS EXTERNA
     Route: 001
     Dates: start: 20060808, end: 20060809
  3. DOLIPRANE [Concomitant]
     Indication: PYREXIA
     Route: 048
     Dates: start: 20060808, end: 20060809

REACTIONS (2)
  - CLONIC CONVULSION [None]
  - LOSS OF CONSCIOUSNESS [None]
